FAERS Safety Report 15852155 (Version 1)
Quarter: 2019Q1

REPORT INFORMATION
  Report Type: Report from Study
  Country: ZA (occurrence: ZA)
  Receive Date: 20190122
  Receipt Date: 20190122
  Transmission Date: 20190417
  Serious: Yes (Hospitalization)
  Sender: FDA-Public Use
  Company Number: ZA-SAKK-2019SA011805AA

PATIENT
  Age: 57 Year
  Sex: Male

DRUGS (6)
  1. INSULIN GLULISINE [Suspect]
     Active Substance: INSULIN GLULISINE
     Dosage: BB (BEFORE BREAKFAST)-12 UNITS, BS (BEFORE SUPPER) 12 UNITS, BL (BEFORE LUNCH)-12 UNITS,TID
     Dates: start: 20180831
  2. MYOPRIN [Concomitant]
     Active Substance: ASPIRIN
     Dosage: BS-100 MG, QD (BEFORE SUPPER)
     Dates: start: 20180905
  3. CARDICOR [Concomitant]
     Active Substance: BISOPROLOL
     Dosage: BS-10 MG, QD (BEFORE SUPPER)
     Dates: start: 20180905
  4. OPTISULIN [INSULIN GLARGINE] [Concomitant]
     Active Substance: INSULIN GLARGINE
     Dosage: BT-40 U, HS (AT BEDTIME)
     Dates: start: 20180831
  5. ZUVAMOR [Concomitant]
     Active Substance: ROSUVASTATIN
     Dosage: BS-10 MG, QD (BEFORE SUPPER)
     Dates: start: 20180905
  6. ECOTRIN [Concomitant]
     Active Substance: ASPIRIN
     Dosage: BS-81 MG, QD (BEFORE SUPPER)
     Dates: start: 20180905

REACTIONS (2)
  - Arterial disorder [Recovered/Resolved]
  - Chest pain [Recovered/Resolved]

NARRATIVE: CASE EVENT DATE: 20190104
